FAERS Safety Report 7675365-8 (Version None)
Quarter: 2011Q3

REPORT INFORMATION
  Report Type: 
  Country: None (occurrence: None)
  Receive Date: 20110810
  Receipt Date: 20110808
  Transmission Date: 20111222
  Serious: Yes (Other)
  Sender: FDA-Public Use
  Company Number: GB-PFIZER INC-2011182124

PATIENT
  Age: 25 Year
  Sex: Female

DRUGS (1)
  1. VARENICLINE TARTRATE [Suspect]
     Indication: SMOKING CESSATION THERAPY
     Dosage: 1 MG, 2X/DAY
     Route: 048
     Dates: start: 20110624, end: 20110721

REACTIONS (7)
  - DYSKINESIA [None]
  - NAUSEA [None]
  - LETHARGY [None]
  - PULSE PRESSURE INCREASED [None]
  - HEADACHE [None]
  - PALPITATIONS [None]
  - PARAESTHESIA [None]
